FAERS Safety Report 10228271 (Version 1)
Quarter: 2014Q2

REPORT INFORMATION
  Report Type: Spontaneous
  Country: US (occurrence: None)
  Receive Date: 20140609
  Receipt Date: 20140609
  Transmission Date: 20141212
  Serious: Yes (Other)
  Sender: FDA-Public Use
  Company Number: None

PATIENT
  Age: 73 Year
  Sex: Female
  Weight: 64.86 kg

DRUGS (1)
  1. LATISSE [Suspect]
     Indication: MADAROSIS
     Dosage: 1 APPLICATION OD; APPLIED TO EYELID

REACTIONS (2)
  - Cataract [None]
  - Visual impairment [None]
